FAERS Safety Report 12879654 (Version 1)
Quarter: 2016Q4

REPORT INFORMATION
  Report Type: Spontaneous
  Country: GR (occurrence: GR)
  Receive Date: 20161025
  Receipt Date: 20161025
  Transmission Date: 20170207
  Serious: Yes (Death, Life-Threatening, Hospitalization)
  Sender: FDA-Public Use
  Company Number: GR-AXELLIA-000995

PATIENT
  Age: 76 Year
  Sex: Male

DRUGS (6)
  1. LINEZOLID. [Suspect]
     Active Substance: LINEZOLID
     Indication: CORYNEBACTERIUM INFECTION
  2. VANCOMYCIN [Suspect]
     Active Substance: VANCOMYCIN
     Indication: CORYNEBACTERIUM INFECTION
  3. CEFTRIAXONE. [Concomitant]
     Active Substance: CEFTRIAXONE
  4. METHYLPREDNISOLONE. [Suspect]
     Active Substance: METHYLPREDNISOLONE
     Indication: DERMATITIS ATOPIC
     Route: 048
  5. MEROPENEM. [Suspect]
     Active Substance: MEROPENEM
     Indication: LOWER RESPIRATORY TRACT INFECTION
  6. MOXIFLOXACIN/MOXIFLOXACIN HYDROCHLORIDE [Concomitant]

REACTIONS (3)
  - Sepsis [Fatal]
  - Multiple-drug resistance [Not Recovered/Not Resolved]
  - Corynebacterium infection [Not Recovered/Not Resolved]
